FAERS Safety Report 5747553-9 (Version None)
Quarter: 2008Q2

REPORT INFORMATION
  Report Type: 
  Country: None (occurrence: None)
  Receive Date: 20080523
  Receipt Date: 20080514
  Transmission Date: 20081010
  Serious: Yes (Other)
  Sender: FDA-Public Use
  Company Number: GB-WYE-H04197708

PATIENT
  Sex: Male

DRUGS (9)
  1. AMIODARONE [Suspect]
     Indication: ATRIAL FLUTTER
     Route: 048
     Dates: start: 20060201
  2. ARYTHMOL [Interacting]
     Indication: ATRIAL FLUTTER
  3. THYROXIN [Concomitant]
  4. CANDESARTAN [Concomitant]
  5. DIGOXIN [Concomitant]
     Dates: end: 20060609
  6. WARFARIN SODIUM [Interacting]
     Dosage: 5 MG 3 DAYS/WEEK/6 MG 4 DAYS/WEEK
  7. WARFARIN SODIUM [Interacting]
     Dosage: 4 MG 3 DAYS/WEEK/3 MG 4 DAYS/WEEK
  8. WARFARIN SODIUM [Interacting]
     Dosage: 4 MG (FREQUENCY UNSPECIFIED)
  9. ATORVASTATIN CALCIUM [Concomitant]

REACTIONS (4)
  - DRUG INEFFECTIVE [None]
  - DRUG INTERACTION [None]
  - HYPOTHYROIDISM [None]
  - INTERNATIONAL NORMALISED RATIO INCREASED [None]
